FAERS Safety Report 9415121 (Version 2)
Quarter: 2013Q3

REPORT INFORMATION
  Report Type: Spontaneous
  Country: CN (occurrence: CN)
  Receive Date: 20130723
  Receipt Date: 20130925
  Transmission Date: 20140515
  Serious: Yes (Other)
  Sender: FDA-Public Use
  Company Number: PHHY2013CN077178

PATIENT
  Age: 76 Year
  Sex: Female

DRUGS (1)
  1. ZOLEDRONATE [Suspect]
     Indication: OSTEOPOROSIS
     Dosage: 4 MG, TWICE

REACTIONS (9)
  - Osteonecrosis of jaw [Unknown]
  - Loose tooth [Unknown]
  - Toothache [Unknown]
  - Gingival swelling [Unknown]
  - Tooth resorption [Unknown]
  - Bone density increased [Unknown]
  - Primary sequestrum [Unknown]
  - Oral cavity fistula [Unknown]
  - Wound [Recovering/Resolving]
